FAERS Safety Report 13937515 (Version 4)
Quarter: 2018Q2

REPORT INFORMATION
  Report Type: Spontaneous
  Country: US (occurrence: US)
  Receive Date: 20170905
  Receipt Date: 20180620
  Transmission Date: 20180711
  Serious: No
  Sender: FDA-Public Use
  Company Number: US-PFIZER INC-2017342041

PATIENT
  Age: 15 Year
  Sex: Male

DRUGS (3)
  1. GENOTROPIN MQ [Suspect]
     Active Substance: SOMATROPIN
     Dosage: UNK
     Route: 058
     Dates: start: 20170801, end: 20170823
  2. GENOTROPIN MQ [Suspect]
     Active Substance: SOMATROPIN
     Dosage: 0.8 MG, 2X/DAY
     Route: 058
     Dates: start: 201802
  3. GENOTROPIN MQ [Suspect]
     Active Substance: SOMATROPIN
     Indication: PRADER-WILLI SYNDROME
     Dosage: 1 MG , DAILY
     Route: 058
     Dates: start: 2016

REACTIONS (7)
  - Abnormal behaviour [Unknown]
  - Drug dose omission [Unknown]
  - Decreased eye contact [Not Recovered/Not Resolved]
  - Device issue [Unknown]
  - Injection site haemorrhage [Not Recovered/Not Resolved]
  - Speech disorder [Not Recovered/Not Resolved]
  - Poor quality drug administered [Unknown]

NARRATIVE: CASE EVENT DATE: 20170815
